FAERS Safety Report 17513807 (Version 1)
Quarter: 2020Q1

REPORT INFORMATION
  Report Type: Spontaneous
  Country: US (occurrence: US)
  Receive Date: 20200306
  Receipt Date: 20200306
  Transmission Date: 20200409
  Serious: No
  Sender: FDA-Public Use
  Company Number: US-LANNETT COMPANY, INC.-US-2020LAN000039

PATIENT
  Age: 67 Year
  Sex: Male

DRUGS (1)
  1. DRONABINOL. [Suspect]
     Active Substance: DRONABINOL
     Indication: PRODUCT USED FOR UNKNOWN INDICATION
     Dosage: 5 MG, TID
     Route: 048
     Dates: start: 201911

REACTIONS (2)
  - No adverse event [Unknown]
  - Product storage error [Unknown]

NARRATIVE: CASE EVENT DATE: 20200130
